FAERS Safety Report 17897568 (Version 2)
Quarter: 2020Q3

REPORT INFORMATION
  Report Type: Report from Study
  Country: BR (occurrence: BR)
  Receive Date: 20200615
  Receipt Date: 20200716
  Transmission Date: 20201103
  Serious: Yes (Disabling, Other)
  Sender: FDA-Public Use
  Company Number: NVSC2020BR165807

PATIENT
  Age: 81 Year
  Sex: Male

DRUGS (3)
  1. DIOVAN AMLO FIX [Suspect]
     Active Substance: AMLODIPINE\VALSARTAN
     Indication: PRODUCT USED FOR UNKNOWN INDICATION
     Dosage: 10 MG
     Route: 065
     Dates: start: 200812, end: 2019
  2. CAPTOPRIL. [Suspect]
     Active Substance: CAPTOPRIL
     Indication: PRODUCT USED FOR UNKNOWN INDICATION
     Dosage: UNK
     Route: 065
  3. HYDROCHLOROTHIAZIDE. [Suspect]
     Active Substance: HYDROCHLOROTHIAZIDE
     Indication: PRODUCT USED FOR UNKNOWN INDICATION
     Dosage: UNK
     Route: 065

REACTIONS (10)
  - Hypertension [Unknown]
  - Ill-defined disorder [Unknown]
  - Cardiovascular disorder [Unknown]
  - Ligament sprain [Unknown]
  - Anxiety [Unknown]
  - Blindness [Unknown]
  - Glaucoma [Unknown]
  - Nervousness [Unknown]
  - Peripheral swelling [Unknown]
  - Ischaemia [Unknown]

NARRATIVE: CASE EVENT DATE: 20200609
